FAERS Safety Report 11225461 (Version 1)
Quarter: 2015Q2

REPORT INFORMATION
  Report Type: Spontaneous
  Country: US (occurrence: None)
  Receive Date: 20150626
  Receipt Date: 20150626
  Transmission Date: 20150821
  Serious: Yes (Hospitalization)
  Sender: FDA-Public Use
  Company Number: None

PATIENT
  Age: 61 Year
  Sex: Female
  Weight: 58.97 kg

DRUGS (8)
  1. NORVASC [Concomitant]
     Active Substance: AMLODIPINE BESYLATE
  2. PRIALT [Suspect]
     Active Substance: ZICONOTIDE ACETATE
     Indication: PAIN
     Dosage: 2ND DOSE
     Route: 037
  3. CELEBREX [Concomitant]
     Active Substance: CELECOXIB
  4. ATENOLOL. [Concomitant]
     Active Substance: ATENOLOL
  5. VICODIN HP [Concomitant]
     Active Substance: ACETAMINOPHEN\HYDROCODONE BITARTRATE
  6. PRILOSEC [Concomitant]
     Active Substance: OMEPRAZOLE MAGNESIUM
  7. PRIALT [Suspect]
     Active Substance: ZICONOTIDE ACETATE
     Indication: FIBROMYALGIA
     Dosage: 2ND DOSE
     Route: 037
  8. MORPHINE [Concomitant]
     Active Substance: MORPHINE

REACTIONS (4)
  - Dizziness [None]
  - Nausea [None]
  - Blood pressure increased [None]
  - Drug ineffective [None]

NARRATIVE: CASE EVENT DATE: 20150624
